FAERS Safety Report 9776176 (Version 1)
Quarter: 2013Q4

REPORT INFORMATION
  Report Type: Spontaneous
  Country: SI (occurrence: SI)
  Receive Date: 20131220
  Receipt Date: 20131220
  Transmission Date: 20140711
  Serious: Yes (Other)
  Sender: FDA-Public Use
  Company Number: SI-ACTAVIS-2013-23452

PATIENT
  Age: 83 Year
  Sex: Male

DRUGS (1)
  1. GITRABIN [Suspect]
     Indication: LUNG NEOPLASM MALIGNANT
     Dosage: 2400 MG, UNK
     Route: 042
     Dates: start: 20131105, end: 20131105

REACTIONS (2)
  - Erythema [Unknown]
  - Flushing [Unknown]
